FAERS Safety Report 12504401 (Version 1)
Quarter: 2016Q2

REPORT INFORMATION
  Report Type: Spontaneous
  Country: FR (occurrence: FR)
  Receive Date: 20160628
  Receipt Date: 20160628
  Transmission Date: 20160815
  Serious: Yes (Hospitalization, Other)
  Sender: FDA-Public Use
  Company Number: FR-PFIZER INC-2016310908

PATIENT
  Age: 83 Year
  Sex: Female

DRUGS (10)
  1. GLICLAZIDE [Concomitant]
     Active Substance: GLICLAZIDE
  2. FUROSEMIDE RENAUDIN [Suspect]
     Active Substance: FUROSEMIDE
     Dosage: UNK
     Route: 042
     Dates: start: 20160408, end: 20160422
  3. APROVEL [Concomitant]
     Active Substance: IRBESARTAN
  4. SERTRALINE [Concomitant]
     Active Substance: SERTRALINE HYDROCHLORIDE
  5. INEXIUM [Concomitant]
     Active Substance: ESOMEPRAZOLE
  6. TAHOR [Suspect]
     Active Substance: ATORVASTATIN CALCIUM
     Dosage: 20 MG, DAILY
     Route: 042
     Dates: start: 20160407, end: 20160414
  7. ERYTHROCINE [Suspect]
     Active Substance: ERYTHROMYCIN
     Dosage: 3 G, DAILY
     Route: 042
     Dates: start: 20160408, end: 20160412
  8. PIPERACILLIN AND TAZOBACTAM [Suspect]
     Active Substance: PIPERACILLIN SODIUM\TAZOBACTAM SODIUM
     Dosage: 4 G, 4X/DAY
     Route: 042
     Dates: start: 20160407, end: 20160412
  9. PRAVASTATIN [Concomitant]
     Active Substance: PRAVASTATIN\PRAVASTATIN SODIUM
  10. IRON [Concomitant]
     Active Substance: IRON

REACTIONS (2)
  - Tubulointerstitial nephritis [Recovered/Resolved]
  - Acute kidney injury [Recovering/Resolving]

NARRATIVE: CASE EVENT DATE: 20160411
